FAERS Safety Report 15391543 (Version 1)
Quarter: 2018Q3

REPORT INFORMATION
  Report Type: Spontaneous
  Country: US (occurrence: US)
  Receive Date: 20180917
  Receipt Date: 20180917
  Transmission Date: 20181010
  Serious: No
  Sender: FDA-Public Use
  Company Number: US-GLENMARK PHARMACEUTICALS-2018GMK036556

PATIENT

DRUGS (6)
  1. TELMISARTAN TABLETS [Suspect]
     Active Substance: TELMISARTAN
     Indication: HYPERTENSION
     Dosage: 20 MG, OD
     Route: 048
     Dates: start: 20180705
  2. PREVACID [Concomitant]
     Active Substance: LANSOPRAZOLE
     Indication: GASTROOESOPHAGEAL REFLUX DISEASE
     Dosage: 30 MG, BID
     Route: 065
  3. SYNTHROID [Concomitant]
     Active Substance: LEVOTHYROXINE SODIUM
     Indication: HYPOTHYROIDISM
     Dosage: 100 MCG, OD
     Route: 065
  4. ALLEGRA [Concomitant]
     Active Substance: FEXOFENADINE HYDROCHLORIDE
     Indication: SEASONAL ALLERGY
     Dosage: 180 MG, OD
     Route: 065
  5. PAXIL [Concomitant]
     Active Substance: PAROXETINE HYDROCHLORIDE
     Indication: RELAXATION THERAPY
     Dosage: 20 MG, QD
     Route: 065
  6. HYTRIN [Concomitant]
     Active Substance: TERAZOSIN HYDROCHLORIDE
     Indication: PROSTATIC DISORDER
     Dosage: 5 MG, HS
     Route: 065

REACTIONS (1)
  - Muscle spasms [Recovered/Resolved]
